FAERS Safety Report 8388983-9 (Version None)
Quarter: 2012Q2

REPORT INFORMATION
  Report Type: 
  Country: None (occurrence: None)
  Receive Date: 20120528
  Receipt Date: 20120524
  Transmission Date: 20120825
  Serious: No
  Sender: FDA-Public Use
  Company Number: US-PFIZER INC-2012126232

PATIENT
  Sex: Female
  Weight: 51.247 kg

DRUGS (2)
  1. VENLAFAXINE HCL [Suspect]
     Indication: ANXIETY
     Dosage: 70 MG, ONCE
  2. VENLAFAXINE HCL [Suspect]
     Indication: DEPRESSION

REACTIONS (2)
  - THINKING ABNORMAL [None]
  - MENTAL DISORDER [None]
